FAERS Safety Report 23111330 (Version 1)
Quarter: 2023Q4

REPORT INFORMATION
  Report Type: Spontaneous
  Country: US (occurrence: None)
  Receive Date: 20231025
  Receipt Date: 20231025
  Transmission Date: 20240110
  Serious: No
  Sender: FDA-Public Use
  Company Number: None

PATIENT
  Sex: Female

DRUGS (11)
  1. ENBREL [Suspect]
     Active Substance: ETANERCEPT
     Indication: Spinal disorder
     Dosage: FREQUENCY : WEEKLY;?
     Route: 058
     Dates: start: 20230912
  2. ENBREL [Suspect]
     Active Substance: ETANERCEPT
     Indication: Ankylosing spondylitis
     Dosage: FREQUENCY : WEEKLY;?
     Route: 058
  3. GABAPENTIN [Concomitant]
  4. MELOXICAM [Concomitant]
     Active Substance: MELOXICAM
  5. MINIPRESS [Concomitant]
  6. SINGULAIR [Concomitant]
  7. SULFASALAZIN [Concomitant]
  8. TIZANIDINE [Concomitant]
  9. VICTOZA [Concomitant]
     Active Substance: LIRAGLUTIDE
  10. VISTARIL [Concomitant]
  11. VITAMIN D3 [Concomitant]
     Active Substance: CHOLECALCIFEROL

REACTIONS (3)
  - Ankylosing spondylitis [None]
  - Alopecia [None]
  - Alopecia [None]
